FAERS Safety Report 12350144 (Version 1)
Quarter: 2016Q2

REPORT INFORMATION
  Report Type: Spontaneous
  Country: US (occurrence: US)
  Receive Date: 20160510
  Receipt Date: 20160510
  Transmission Date: 20160815
  Serious: Yes (Hospitalization, Other)
  Sender: FDA-Public Use
  Company Number: US-ZYDUS-010976

PATIENT
  Age: 17 Year
  Sex: Female

DRUGS (1)
  1. BENZONATATE. [Suspect]
     Active Substance: BENZONATATE
     Indication: COUGH
     Dosage: SWALLOWED 12 TABLETS
     Route: 048

REACTIONS (12)
  - Pneumothorax [Unknown]
  - Cardiac arrest [Recovering/Resolving]
  - Dizziness [Unknown]
  - Pulse absent [Recovering/Resolving]
  - Hypokalaemia [Unknown]
  - Nausea [Unknown]
  - Apnoeic attack [Unknown]
  - Ventricular fibrillation [Recovering/Resolving]
  - Seizure [Unknown]
  - Overdose [Unknown]
  - Hypomagnesaemia [Unknown]
  - Amnesia [Unknown]
